FAERS Safety Report 5499951-9 (Version None)
Quarter: 2007Q4

REPORT INFORMATION
  Report Type: 
  Country: None (occurrence: None)
  Receive Date: 20071026
  Receipt Date: 20071017
  Transmission Date: 20080405
  Serious: Yes (Other)
  Sender: FDA-Public Use
  Company Number: US-PFIZER INC-2007088995

PATIENT
  Sex: Female
  Weight: 47.727 kg

DRUGS (2)
  1. CHANTIX [Suspect]
  2. PROMETHAZINE [Suspect]
     Indication: NAUSEA

REACTIONS (5)
  - DIZZINESS [None]
  - FATIGUE [None]
  - MUTISM [None]
  - NAUSEA [None]
  - SOMNOLENCE [None]
